FAERS Safety Report 14111685 (Version 1)
Quarter: 2017Q4

REPORT INFORMATION
  Report Type: Spontaneous
  Country: SE (occurrence: SE)
  Receive Date: 20171020
  Receipt Date: 20171020
  Transmission Date: 20180321
  Serious: Yes (Other)
  Sender: FDA-Public Use
  Company Number: SE-PFIZER INC-2017451934

PATIENT
  Age: 63 Year
  Sex: Male

DRUGS (8)
  1. AMLODIPIN SANDOZ /00972404/ [Concomitant]
     Dosage: UNK
  2. ARTHROTEC [Concomitant]
     Active Substance: DICLOFENAC SODIUM\MISOPROSTOL
     Dosage: UNK UNK, AS NEEDED
  3. CITODON /00116401/ [Concomitant]
     Active Substance: ACETAMINOPHEN\CODEINE PHOSPHATE
     Dosage: UNK UNK, AS NEEDED
  4. ALVEDON [Concomitant]
     Active Substance: ACETAMINOPHEN
     Dosage: UNK UNK, AS NEEDED
  5. SALAZOPYRIN EN [Concomitant]
     Active Substance: SULFASALAZINE
     Dosage: UNK
  6. XELJANZ [Suspect]
     Active Substance: TOFACITINIB CITRATE
     Indication: RHEUMATOID ARTHRITIS
     Dosage: 5 MG, 2X/DAY
     Route: 048
     Dates: start: 20170316, end: 20170725
  7. IRBESARTAN/HYDROCHLOROTHIAZIDE SANDOZ [Concomitant]
     Dosage: UNK
  8. PREDNISOLON ALTERNOVA [Concomitant]
     Active Substance: PREDNISOLONE
     Dosage: UNK

REACTIONS (3)
  - Erythema multiforme [Not Recovered/Not Resolved]
  - Tinea infection [Not Recovered/Not Resolved]
  - Seborrhoeic dermatitis [Not Recovered/Not Resolved]

NARRATIVE: CASE EVENT DATE: 20170531
